FAERS Safety Report 6559003-3 (Version None)
Quarter: 2010Q1

REPORT INFORMATION
  Report Type: 
  Country: None (occurrence: None)
  Receive Date: 20100129
  Receipt Date: 20100122
  Transmission Date: 20100710
  Serious: Yes (Other)
  Sender: FDA-Public Use
  Company Number: US-ELI_LILLY_AND_COMPANY-US200912002140

PATIENT
  Sex: Female

DRUGS (8)
  1. HUMALOG [Suspect]
     Indication: TYPE 2 DIABETES MELLITUS
     Dosage: 5 U, 2/D
     Dates: start: 20091009
  2. HUMALOG [Suspect]
     Dosage: 10 U, 2/D
  3. HUMALOG [Suspect]
     Dosage: UNK, AS NEEDED
     Dates: start: 20090901
  4. LANTUS [Concomitant]
     Dosage: 58 U, EACH EVENING
     Dates: start: 20040101
  5. ANTIHYPERTENSIVES [Concomitant]
  6. METOPROLOL [Concomitant]
  7. FEOSOL [Concomitant]
  8. GLIMEPIRIDE [Concomitant]

REACTIONS (7)
  - ANAEMIA [None]
  - BLOOD GLUCOSE INCREASED [None]
  - CORONARY ARTERY DISEASE [None]
  - CORONARY ARTERY THROMBOSIS [None]
  - DIZZINESS [None]
  - DRUG DOSE OMISSION [None]
  - HYPOTENSION [None]
